FAERS Safety Report 7691524-2 (Version None)
Quarter: 2011Q3

REPORT INFORMATION
  Report Type: 
  Country: None (occurrence: None)
  Receive Date: 20110817
  Receipt Date: 20110817
  Transmission Date: 20111222
  Serious: Yes (Hospitalization)
  Sender: FDA-Public Use
  Company Number: None

PATIENT
  Sex: Female
  Weight: 78.02 kg

DRUGS (2)
  1. CISPLATIN [Suspect]
     Dosage: 46 MG
     Dates: end: 20110803
  2. TAXOL [Suspect]
     Dosage: 325 MG
     Dates: end: 20110803

REACTIONS (9)
  - CHROMATURIA [None]
  - DEVICE DISLOCATION [None]
  - URINARY TRACT INFECTION PSEUDOMONAL [None]
  - ABDOMINAL PAIN [None]
  - FLANK PAIN [None]
  - URINE OUTPUT DECREASED [None]
  - URINARY TRACT INFECTION STAPHYLOCOCCAL [None]
  - URINARY TRACT INFECTION ENTEROCOCCAL [None]
  - NAUSEA [None]
